FAERS Safety Report 22177306 (Version 3)
Quarter: 2023Q2

REPORT INFORMATION
  Report Type: Spontaneous
  Country: FR (occurrence: FR)
  Receive Date: 20230405
  Receipt Date: 20230605
  Transmission Date: 20230722
  Serious: Yes (Death, Other)
  Sender: FDA-Public Use
  Company Number: FR-AMGEN-FRASP2023058116

PATIENT
  Sex: Female

DRUGS (1)
  1. LUMAKRAS [Suspect]
     Active Substance: SOTORASIB
     Indication: Product used for unknown indication
     Dosage: 960 MILLIGRAM
     Route: 065
     Dates: end: 20221009

REACTIONS (7)
  - Neoplasm malignant [Fatal]
  - Sepsis [Unknown]
  - Renal failure [Unknown]
  - Respiratory distress [Unknown]
  - Fear of death [Unknown]
  - Pain [Unknown]
  - Drug ineffective [Unknown]
